FAERS Safety Report 15686350 (Version 1)
Quarter: 2018Q4

REPORT INFORMATION
  Report Type: Spontaneous
  Country: CA (occurrence: CA)
  Receive Date: 20181204
  Receipt Date: 20181204
  Transmission Date: 20190205
  Serious: Yes (Other)
  Sender: FDA-Public Use
  Company Number: CA-ICU MEDICAL, INC.-ICU2018CA00199

PATIENT

DRUGS (8)
  1. ACETAMINOPHEN. [Suspect]
     Active Substance: ACETAMINOPHEN
     Indication: PAIN
     Route: 065
  2. HYDROCODONE [Suspect]
     Active Substance: HYDROCODONE
     Indication: PAIN
     Route: 065
  3. CELEBREX [Suspect]
     Active Substance: CELECOXIB
     Indication: PAIN
     Route: 065
  4. DICLOFENAC [Suspect]
     Active Substance: DICLOFENAC
     Indication: PAIN
     Route: 065
  5. CAFFEINE CITRATE W/CODEINE PHOSPHATE/PARACETA [Suspect]
     Active Substance: ACETAMINOPHEN\CAFFEINE\CODEINE PHOSPHATE
     Indication: PAIN
     Route: 065
  6. BUTRANS [Suspect]
     Active Substance: BUPRENORPHINE
     Indication: PAIN
     Route: 062
  7. CODEINE [Suspect]
     Active Substance: CODEINE
     Indication: PAIN
     Route: 065
  8. MORPHINE SULFATE INJECTION [Suspect]
     Active Substance: MORPHINE SULFATE
     Indication: PAIN
     Route: 065

REACTIONS (10)
  - Dysphagia [Unknown]
  - Back pain [Unknown]
  - Condition aggravated [Unknown]
  - Gastric ulcer [Unknown]
  - Arthralgia [Unknown]
  - Overweight [Unknown]
  - Suicidal ideation [Unknown]
  - Bedridden [Unknown]
  - Mental disorder [Unknown]
  - Overdose [Unknown]
